FAERS Safety Report 25548373 (Version 2)
Quarter: 2025Q3

REPORT INFORMATION
  Report Type: Report from Study
  Country: BR (occurrence: BR)
  Receive Date: 20250714
  Receipt Date: 20250731
  Transmission Date: 20251020
  Serious: Yes (Other)
  Sender: JOHNSON AND JOHNSON
  Company Number: BR-JNJFOC-20250710190

PATIENT
  Age: 49 Year
  Sex: Female
  Weight: 55 kg

DRUGS (7)
  1. GOLIMUMAB [Suspect]
     Active Substance: GOLIMUMAB
     Indication: Ankylosing spondylitis
     Route: 058
  2. GOLIMUMAB [Suspect]
     Active Substance: GOLIMUMAB
     Indication: Crohn^s disease
  3. SIMPONI [Suspect]
     Active Substance: GOLIMUMAB
     Indication: Ankylosing spondylitis
     Route: 058
     Dates: start: 20250528
  4. SIMPONI [Suspect]
     Active Substance: GOLIMUMAB
     Indication: Crohn^s disease
  5. AZATHIOPRINE [Suspect]
     Active Substance: AZATHIOPRINE
     Indication: Crohn^s disease
     Route: 065
  6. AZATHIOPRINE [Suspect]
     Active Substance: AZATHIOPRINE
     Indication: Colitis ulcerative
  7. IRON POLYMALTOSE [Suspect]
     Active Substance: IRON POLYMALTOSE
     Indication: Anaemia
     Route: 042

REACTIONS (5)
  - Gastrointestinal infection [Not Recovered/Not Resolved]
  - Fear of injection [Unknown]
  - Asthenia [Unknown]
  - Blood glucose decreased [Unknown]
  - Inappropriate schedule of product administration [Unknown]
